FAERS Safety Report 8374848-5 (Version None)
Quarter: 2012Q2

REPORT INFORMATION
  Report Type: 
  Country: None (occurrence: None)
  Receive Date: 20120521
  Receipt Date: 20120508
  Transmission Date: 20120825
  Serious: Yes (Hospitalization)
  Sender: FDA-Public Use
  Company Number: JP-ROCHE-1032562

PATIENT
  Sex: Female
  Weight: 54.3 kg

DRUGS (8)
  1. PEGASYS [Suspect]
     Indication: HEPATITIS C
     Route: 058
     Dates: start: 20111018, end: 20111128
  2. BLINDED BI 201335 (HCV PROTEASE INHIBITOR) [Suspect]
     Indication: HEPATITIS C
     Route: 048
     Dates: start: 20111018, end: 20111211
  3. PEGASYS [Suspect]
     Route: 058
     Dates: start: 20111205, end: 20111205
  4. COPEGUS [Suspect]
     Indication: HEPATITIS C
     Route: 048
     Dates: start: 20111018, end: 20111127
  5. BLINDED BI 201335 (HCV PROTEASE INHIBITOR) [Suspect]
     Dates: start: 20120105
  6. COPEGUS [Suspect]
     Route: 048
     Dates: start: 20111128, end: 20111204
  7. LOSARTAN POTASSIUM [Concomitant]
  8. LOSARTAN POTASSIUM [Concomitant]
     Indication: PERICARDITIS CONSTRICTIVE
     Route: 048

REACTIONS (3)
  - ATRIAL FIBRILLATION [None]
  - ANAEMIA [None]
  - CARDIAC FAILURE CONGESTIVE [None]
